FAERS Safety Report 18233111 (Version 2)
Quarter: 2025Q4

REPORT INFORMATION
  Report Type: Spontaneous
  Country: US (occurrence: US)
  Receive Date: 20200904
  Receipt Date: 20251114
  Transmission Date: 20260118
  Serious: Yes (Life-Threatening, Hospitalization)
  Sender: NOVO NORDISK
  Company Number: US-NOVOPROD-750961

PATIENT
  Sex: Female

DRUGS (3)
  1. LEVEMIR [Suspect]
     Active Substance: INSULIN DETEMIR
     Indication: Type 2 diabetes mellitus
     Dosage: 24 IU, QD
     Route: 058
  2. ELIQUIS [Suspect]
     Active Substance: APIXABAN
     Dosage: 2.5 MG, BID
     Route: 058
     Dates: start: 2019
  3. ELIQUIS [Suspect]
     Active Substance: APIXABAN
     Indication: Thrombosis
     Dosage: 5 MG, BID
     Route: 058
     Dates: start: 2019

REACTIONS (2)
  - Haemorrhage [Not Recovered/Not Resolved]
  - Visual impairment [Unknown]

NARRATIVE: CASE EVENT DATE: 20200801
